FAERS Safety Report 10565582 (Version 1)
Quarter: 2014Q4

REPORT INFORMATION
  Report Type: Spontaneous
  Country: CN (occurrence: CN)
  Receive Date: 20141105
  Receipt Date: 20141105
  Transmission Date: 20150529
  Serious: Yes (Death, Other)
  Sender: FDA-Public Use
  Company Number: CN-GLAXOSMITHKLINE-CN2014GSK015177

PATIENT
  Age: 74 Year
  Sex: Female

DRUGS (1)
  1. HEPTODIN [Suspect]
     Active Substance: LAMIVUDINE
     Indication: HEPATIC CIRRHOSIS
     Dosage: 1 UNK, QD
     Route: 048
     Dates: start: 20141011, end: 20141017

REACTIONS (2)
  - Rhabdomyolysis [Fatal]
  - Off label use [Recovered/Resolved]

NARRATIVE: CASE EVENT DATE: 20141011
